FAERS Safety Report 9460383 (Version 2)
Quarter: 2013Q3

REPORT INFORMATION
  Report Type: Spontaneous
  Country: US (occurrence: US)
  Receive Date: 20130815
  Receipt Date: 20130917
  Transmission Date: 20140515
  Serious: Yes (Other)
  Sender: FDA-Public Use
  Company Number: US-TEVA-425425USA

PATIENT
  Age: 41 Year
  Sex: Female
  Weight: 66.74 kg

DRUGS (1)
  1. MIRENA [Suspect]

REACTIONS (3)
  - Device dislocation [Recovered/Resolved]
  - Abdominal discomfort [Recovered/Resolved]
  - Device expulsion [Recovered/Resolved]
